FAERS Safety Report 5237762-X (Version None)
Quarter: 2007Q1

REPORT INFORMATION
  Report Type: 
  Country: None (occurrence: None)
  Receive Date: 20070214
  Receipt Date: 20070205
  Transmission Date: 20070707
  Serious: Yes (Other)
  Sender: FDA-Public Use
  Company Number: JP-JPN-A200700148

PATIENT
  Age: 66 Year
  Sex: Female

DRUGS (9)
  1. PAXIL [Suspect]
     Indication: DEPRESSION
     Route: 048
     Dates: start: 20051205, end: 20051222
  2. ETIZOLAM [Concomitant]
     Dosage: .5MG PER DAY
     Route: 065
  3. ZOLPIDEM TARTRATE [Concomitant]
     Dosage: 10MG PER DAY
     Route: 065
  4. VALSARTAN [Concomitant]
     Dosage: 80MG PER DAY
     Route: 065
  5. VERAPAMIL [Concomitant]
     Dosage: 120MG PER DAY
     Route: 065
  6. ASPIRIN [Concomitant]
     Dosage: 100MG PER DAY
     Route: 065
  7. WARFARIN SODIUM [Concomitant]
     Dosage: 2MG PER DAY
     Route: 065
  8. LOXOPROFEN [Concomitant]
     Dosage: 180MG PER DAY
     Route: 065
  9. TEPRENONE [Concomitant]
     Dosage: 150MG PER DAY
     Route: 065

REACTIONS (12)
  - AGITATION [None]
  - ANXIETY [None]
  - CHILLS [None]
  - CLONUS [None]
  - DRUG INTERACTION [None]
  - DYSARTHRIA [None]
  - HEADACHE [None]
  - MYOCLONUS [None]
  - SEROTONIN SYNDROME [None]
  - SPEECH DISORDER [None]
  - TREMOR [None]
  - VISUAL ACUITY REDUCED [None]
